FAERS Safety Report 16189402 (Version 9)
Quarter: 2019Q3

REPORT INFORMATION
  Report Type: Report from Study
  Country: TR (occurrence: TR)
  Receive Date: 20190412
  Receipt Date: 20190930
  Transmission Date: 20191004
  Serious: Yes (Hospitalization, Other)
  Sender: FDA-Public Use
  Company Number: TR-ROCHE-2289868

PATIENT
  Age: 54 Year
  Sex: Female
  Weight: 51.4 kg

DRUGS (15)
  1. PARACETAMOL [Concomitant]
     Active Substance: ACETAMINOPHEN
     Indication: PAIN
     Route: 065
     Dates: start: 20190111
  2. CARBOPLATIN. [Suspect]
     Active Substance: CARBOPLATIN
     Indication: OVARIAN CANCER
     Dosage: DOSE OF LAST CARBOPLATIN ADMINISTERED PRIOR TO AE ONSET WAS 650MG?ON 22/FEB/2019, MOST RECENT DOSE O
     Route: 042
     Dates: start: 20181109
  3. ATEZOLIZUMAB. [Suspect]
     Active Substance: ATEZOLIZUMAB
     Indication: OVARIAN CANCER
     Dosage: ON 15/MAR/2019, MOST RECENT DOSE OF BLINDED ATEZOLIZUMAB WAS ADMINISTERED PRIOR TO AE ONSET.?ON 05/A
     Route: 042
     Dates: start: 20181109
  4. BEVACIZUMAB. [Suspect]
     Active Substance: BEVACIZUMAB
     Indication: OVARIAN CANCER
     Dosage: DOSE OF LAST BEVACIZUMAB ADMINISTERED PRIOR TO AE ONSET WAS 862.5MG?ON 15/MAR/2019, MOST RECENT DOSE
     Route: 042
     Dates: start: 20181130
  5. PARACETAMOL [Concomitant]
     Active Substance: ACETAMINOPHEN
     Route: 065
     Dates: start: 20181130
  6. PHENIRAMINE [Concomitant]
     Active Substance: PHENIRAMINE
     Route: 065
     Dates: start: 20190222, end: 20190222
  7. PACLITAXEL. [Suspect]
     Active Substance: PACLITAXEL
     Indication: OVARIAN CANCER
     Dosage: DOSE OF LAST PACLITAXEL ADMINISTERED PRIOR TO AE ONSET WAS 220MG.?ON 22/FEB/2019, MOST RECENT DOSE O
     Route: 042
     Dates: start: 20181109
  8. PREGABALIN. [Concomitant]
     Active Substance: PREGABALIN
     Indication: NEUROPATHY PERIPHERAL
     Route: 065
     Dates: start: 20181116
  9. DEXAMETHASONE. [Concomitant]
     Active Substance: DEXAMETHASONE
     Route: 042
     Dates: start: 20190222, end: 20190222
  10. CAFFEINE. [Concomitant]
     Active Substance: CAFFEINE
     Indication: NEUROPATHY PERIPHERAL
     Route: 065
     Dates: start: 20181130
  11. PALONOSETRON HCL [Concomitant]
     Active Substance: PALONOSETRON HYDROCHLORIDE
     Route: 065
     Dates: start: 20190222, end: 20190222
  12. ERYTHROCYTES [Concomitant]
     Active Substance: HUMAN RED BLOOD CELL
     Indication: ANAEMIA
     Route: 065
     Dates: start: 20190315, end: 20190315
  13. CODEINE PHOSPHATE [Concomitant]
     Active Substance: CODEINE PHOSPHATE
     Indication: NEUROPATHY PERIPHERAL
     Route: 065
     Dates: start: 20181130
  14. ERYTHROCYTES [Concomitant]
     Active Substance: HUMAN RED BLOOD CELL
     Indication: ANAEMIA
     Route: 065
     Dates: start: 20190315, end: 20190315
  15. RANITIDINE. [Concomitant]
     Active Substance: RANITIDINE
     Route: 065
     Dates: start: 20190222, end: 20190222

REACTIONS (4)
  - Cystitis [Not Recovered/Not Resolved]
  - Hypothyroidism [Recovering/Resolving]
  - Abdominal infection [Recovering/Resolving]
  - Abscess [Recovering/Resolving]

NARRATIVE: CASE EVENT DATE: 20190322
